FAERS Safety Report 5679309-X (Version None)
Quarter: 2008Q1

REPORT INFORMATION
  Report Type: 
  Country: None (occurrence: None)
  Receive Date: 20080321
  Receipt Date: 20080317
  Transmission Date: 20080703
  Serious: Yes (Hospitalization)
  Sender: FDA-Public Use
  Company Number: L08-ESP-01084-01

PATIENT
  Age: 68 Year
  Sex: Male

DRUGS (3)
  1. DILTIAZEM [Suspect]
     Indication: HYPERTENSION
  2. DILTIAZEM [Suspect]
     Indication: HYPERTENSION
     Dosage: 15 MG ONCE PO
     Route: 048
  3. AMOXICILLIN [Suspect]

REACTIONS (5)
  - ANAPHYLACTIC SHOCK [None]
  - ANGIOEDEMA [None]
  - DIZZINESS [None]
  - DYSPHONIA [None]
  - PRURITUS GENITAL [None]
